FAERS Safety Report 7995769-3 (Version None)
Quarter: 2011Q4

REPORT INFORMATION
  Report Type: 
  Country: None (occurrence: None)
  Receive Date: 20111216
  Receipt Date: 20111202
  Transmission Date: 20120403
  Serious: Yes (Hospitalization)
  Sender: FDA-Public Use
  Company Number: US-1189386

PATIENT
  Age: 21 Year
  Sex: Female

DRUGS (1)
  1. PROPARACAINE HCL [Suspect]
     Indication: CORNEAL ABRASION
     Dosage: OPHTHALMIC
     Route: 047

REACTIONS (12)
  - KERATITIS FUNGAL [None]
  - CORNEAL NEOVASCULARISATION [None]
  - ERYTHEMA [None]
  - EYELID OEDEMA [None]
  - SWELLING FACE [None]
  - STAPHYLOCOCCUS TEST POSITIVE [None]
  - CORNEAL SCAR [None]
  - CORNEAL OEDEMA [None]
  - HYPERSENSITIVITY [None]
  - HYPOPYON [None]
  - DRUG ABUSE [None]
  - CONJUNCTIVAL OEDEMA [None]
